FAERS Safety Report 6348755-3 (Version None)
Quarter: 2009Q3

REPORT INFORMATION
  Report Type: 
  Country: None (occurrence: None)
  Receive Date: 20090911
  Receipt Date: 20090909
  Transmission Date: 20100115
  Serious: Yes (Death, Hospitalization)
  Sender: FDA-Public Use
  Company Number: HQWYE156320JUL07

PATIENT
  Sex: Female
  Weight: 62 kg

DRUGS (6)
  1. MYLOTARG [Suspect]
     Indication: ACUTE MYELOID LEUKAEMIA RECURRENT
     Route: 041
     Dates: start: 20070702, end: 20070702
  2. SOL-MELCORT [Concomitant]
     Route: 041
     Dates: start: 20070612, end: 20070713
  3. SOL-MELCORT [Concomitant]
     Route: 041
     Dates: start: 10070714, end: 20070715
  4. FUNGUARD [Concomitant]
     Route: 041
     Dates: start: 20070711, end: 20070715
  5. PAZUCROSS [Concomitant]
     Route: 041
     Dates: start: 20070628, end: 20070706
  6. PAZUCROSS [Concomitant]
     Route: 041
     Dates: start: 20070708, end: 20070715

REACTIONS (2)
  - NEUTROPHIL COUNT DECREASED [None]
  - PULMONARY ALVEOLAR HAEMORRHAGE [None]
